FAERS Safety Report 21272262 (Version 4)
Quarter: 2022Q4

REPORT INFORMATION
  Report Type: Report from Study
  Country: KR (occurrence: KR)
  Receive Date: 20220830
  Receipt Date: 20221108
  Transmission Date: 20230113
  Serious: Yes (Other)
  Sender: FDA-Public Use
  Company Number: KR-009507513-2109KOR000637

PATIENT
  Age: 22 Year
  Sex: Male
  Weight: 74.4 kg

DRUGS (5)
  1. LETERMOVIR [Suspect]
     Active Substance: LETERMOVIR
     Indication: Antiviral prophylaxis
     Dosage: INJ. 240MG/ML, IV, ONCE DAILY
     Route: 042
     Dates: start: 20201203, end: 20201214
  2. LETERMOVIR [Suspect]
     Active Substance: LETERMOVIR
     Dosage: INJ. 240MG/ML, IV, ONCE DAILY
     Route: 042
     Dates: start: 20201221, end: 20201225
  3. LETERMOVIR [Suspect]
     Active Substance: LETERMOVIR
     Indication: Antiviral prophylaxis
     Dosage: TAB. 240MG, PO, ONCE DAILY
     Route: 048
     Dates: start: 20201215, end: 20201220
  4. LETERMOVIR [Suspect]
     Active Substance: LETERMOVIR
     Dosage: TAB. 240MG, PO, ONCE DAILY
     Route: 048
     Dates: start: 20201226, end: 20210308
  5. CYCLOSPORINE [Concomitant]
     Active Substance: CYCLOSPORINE
     Indication: Prophylaxis against transplant rejection
     Dosage: 110 MILLIGRAM, BID
     Route: 042
     Dates: start: 20201201

REACTIONS (4)
  - Xerophthalmia [Recovered/Resolved]
  - Graft versus host disease [Not Recovered/Not Resolved]
  - Cytomegalovirus colitis [Unknown]
  - Drug ineffective [Unknown]

NARRATIVE: CASE EVENT DATE: 20210105
